FAERS Safety Report 6745072-4 (Version None)
Quarter: 2010Q2

REPORT INFORMATION
  Report Type: 
  Country: None (occurrence: None)
  Receive Date: 20100527
  Receipt Date: 20100525
  Transmission Date: 20101027
  Serious: Yes (Other)
  Sender: FDA-Public Use
  Company Number: FR-MERCK-1004FRA00007

PATIENT
  Age: 70 Year
  Sex: Male

DRUGS (4)
  1. JANUVIA [Suspect]
     Indication: TYPE 2 DIABETES MELLITUS
     Route: 048
     Dates: start: 20090525, end: 20100315
  2. PREGABALIN [Concomitant]
     Route: 048
     Dates: start: 20090101
  3. VALSARTAN [Concomitant]
     Route: 048
     Dates: start: 20090101
  4. ROSUVASTATIN CALCIUM [Concomitant]
     Route: 048
     Dates: start: 20090101

REACTIONS (1)
  - ERYTHEMA MULTIFORME [None]
